FAERS Safety Report 24761542 (Version 1)
Quarter: 2024Q4

REPORT INFORMATION
  Report Type: Spontaneous
  Country: US (occurrence: US)
  Receive Date: 20241220
  Receipt Date: 20241220
  Transmission Date: 20250114
  Serious: Yes (Other)
  Sender: CB FLEET
  Company Number: US-PRESTIGE-202412-US-004306

PATIENT
  Sex: Female

DRUGS (1)
  1. CARBOXYMETHYLCELLULOSE SODIUM [Suspect]
     Active Substance: CARBOXYMETHYLCELLULOSE SODIUM
     Indication: Dry eye
     Dosage: USED ONCE
     Route: 047

REACTIONS (2)
  - Eye infection [Unknown]
  - Foreign body sensation in eyes [Unknown]
